FAERS Safety Report 7939260-9 (Version None)
Quarter: 2011Q4

REPORT INFORMATION
  Report Type: 
  Country: None (occurrence: None)
  Receive Date: 20111124
  Receipt Date: 20111116
  Transmission Date: 20120403
  Serious: Yes (Death, Other)
  Sender: FDA-Public Use
  Company Number: US-VERTEX PHARMACEUTICALS INC.-AE-2011-003589

PATIENT
  Sex: Female

DRUGS (3)
  1. INCIVEK [Suspect]
     Indication: HEPATITIS C
     Dates: start: 20110101
  2. INTERFERON [Concomitant]
     Indication: HEPATITIS C
     Dates: start: 20110101
  3. RIBAVIRIN [Concomitant]
     Indication: HEPATITIS C
     Dates: start: 20110101

REACTIONS (3)
  - TRANSFUSION REACTION [None]
  - METABOLIC ACIDOSIS [None]
  - ANAEMIA [None]
